FAERS Safety Report 14350102 (Version 4)
Quarter: 2018Q1

REPORT INFORMATION
  Report Type: Spontaneous
  Country: JP (occurrence: JP)
  Receive Date: 20180104
  Receipt Date: 20180227
  Transmission Date: 20180509
  Serious: Yes (Hospitalization)
  Sender: FDA-Public Use
  Company Number: JP-ROCHE-2050715

PATIENT
  Age: 16 Year
  Sex: Male
  Weight: 40 kg

DRUGS (25)
  1. NEORAL [Concomitant]
     Active Substance: CYCLOSPORINE
     Route: 048
  2. PREDNISOLONE. [Concomitant]
     Active Substance: PREDNISOLONE
     Route: 048
     Dates: start: 20150907, end: 20151005
  3. LANSOPRAZOLE. [Concomitant]
     Active Substance: LANSOPRAZOLE
     Indication: PROPHYLAXIS
     Route: 048
     Dates: start: 20140908, end: 20151119
  4. IMURAN [Concomitant]
     Active Substance: AZATHIOPRINE
     Route: 048
  5. PREDNISOLONE. [Concomitant]
     Active Substance: PREDNISOLONE
     Route: 048
     Dates: start: 20151019, end: 20151119
  6. NEORAL [Concomitant]
     Active Substance: CYCLOSPORINE
     Indication: NEPHROTIC SYNDROME
     Dosage: DAILY DOSE: UNKNOWN
     Route: 048
     Dates: start: 200208
  7. NEORAL [Concomitant]
     Active Substance: CYCLOSPORINE
     Route: 048
  8. NEORAL [Concomitant]
     Active Substance: CYCLOSPORINE
     Route: 048
  9. AMLODIPINE BESILATE [Concomitant]
     Active Substance: AMLODIPINE BESYLATE
     Indication: HYPERTENSION
     Route: 048
  10. BAKTAR [Concomitant]
     Active Substance: SULFAMETHOXAZOLE\TRIMETHOPRIM
     Indication: PROPHYLAXIS
     Route: 048
     Dates: start: 20150731
  11. NEORAL [Concomitant]
     Active Substance: CYCLOSPORINE
     Dosage: DAILY DOSE: UNKNOWN
     Route: 048
  12. NEORAL [Concomitant]
     Active Substance: CYCLOSPORINE
     Route: 048
  13. PREDNISOLONE. [Concomitant]
     Active Substance: PREDNISOLONE
     Route: 048
     Dates: start: 20150730, end: 20150812
  14. PREDNISOLONE. [Concomitant]
     Active Substance: PREDNISOLONE
     Route: 048
     Dates: start: 20151006, end: 20151018
  15. RITUXAN [Suspect]
     Active Substance: RITUXIMAB
     Dosage: 10MG/ML
     Route: 041
     Dates: start: 20151120, end: 20151120
  16. NEORAL [Concomitant]
     Active Substance: CYCLOSPORINE
     Dosage: DIVIDED INTO 2 DOSES
     Route: 048
  17. PREDNISOLONE. [Concomitant]
     Active Substance: PREDNISOLONE
     Indication: NEPHROTIC SYNDROME
     Route: 048
     Dates: start: 20150701, end: 20150712
  18. PREDNISOLONE. [Concomitant]
     Active Substance: PREDNISOLONE
     Route: 048
     Dates: start: 20150813, end: 20150906
  19. RITUXAN [Suspect]
     Active Substance: RITUXIMAB
     Dosage: 10MG/ML
     Route: 041
     Dates: start: 20170324, end: 20170324
  20. PREDNISOLONE. [Concomitant]
     Active Substance: PREDNISOLONE
     Route: 048
     Dates: start: 20150713, end: 20150729
  21. RITUXAN [Suspect]
     Active Substance: RITUXIMAB
     Indication: NEPHROTIC SYNDROME
     Dosage: 10 MG/ML
     Route: 041
     Dates: start: 20150729, end: 20150729
  22. RITUXAN [Suspect]
     Active Substance: RITUXIMAB
     Dosage: 10MG/ML
     Route: 041
     Dates: start: 20160810, end: 20160810
  23. NEORAL [Concomitant]
     Active Substance: CYCLOSPORINE
     Dosage: DIVIDED INTO 2 DOSES
     Route: 048
  24. IMURAN [Concomitant]
     Active Substance: AZATHIOPRINE
     Indication: NEPHROTIC SYNDROME
     Route: 048
  25. PRAVASTATIN SODIUM. [Concomitant]
     Active Substance: PRAVASTATIN SODIUM
     Indication: HYPERLIPIDAEMIA
     Route: 048

REACTIONS (1)
  - Agranulocytosis [Recovered/Resolved]

NARRATIVE: CASE EVENT DATE: 20151212
